FAERS Safety Report 7591660-5 (Version None)
Quarter: 2011Q3

REPORT INFORMATION
  Report Type: 
  Country: None (occurrence: None)
  Receive Date: 20110706
  Receipt Date: 20080728
  Transmission Date: 20111222
  Serious: Yes (Other)
  Sender: FDA-Public Use
  Company Number: US-BAYER-200829473NA

PATIENT
  Age: 82 Year
  Sex: Female
  Weight: 54.422 kg

DRUGS (12)
  1. TRASYLOL [Suspect]
     Indication: ATRIAL SEPTAL DEFECT REPAIR
  2. TRASYLOL [Suspect]
     Indication: CORONARY ARTERY BYPASS
     Dosage: 200ML LOADING DOSE FOLLOWED BY 50ML/HR INFUSION.
     Route: 042
     Dates: start: 20060306, end: 20060306
  3. TRASYLOL [Suspect]
     Indication: PRODUCT USED FOR UNKNOWN INDICATION
     Dosage: 1 ML, ONCE, TEST DOSE
     Route: 042
     Dates: start: 20060306, end: 20060306
  4. MILRINONE [Concomitant]
     Dosage: MULTIPLE
     Route: 042
     Dates: start: 20060306
  5. PROPAFENONE HCL [Concomitant]
     Dosage: 225 MG, TID
     Dates: start: 19900101
  6. LASIX [Concomitant]
     Dosage: UNK
     Dates: start: 20060307
  7. HEPARIN [Concomitant]
     Dosage: 30000 U, UNK
     Route: 042
     Dates: start: 20060306
  8. VANCOMYCIN [Concomitant]
     Dosage: 2 G, UNK
     Route: 042
     Dates: start: 20060306
  9. ANCEF [Concomitant]
     Dosage: 1 G, UNK
     Route: 042
     Dates: start: 20060306, end: 20060306
  10. TRASYLOL [Suspect]
     Indication: HIGH FREQUENCY ABLATION
  11. ACETYLSALICYLIC ACID SRT [Concomitant]
     Dosage: 81 MG, DAILY
     Route: 048
  12. PROTAMINE SULFATE [Concomitant]
     Dosage: MULTIPLE
     Route: 042
     Dates: start: 20060306, end: 20060306

REACTIONS (11)
  - RENAL INJURY [None]
  - RENAL FAILURE [None]
  - FEAR [None]
  - PAIN [None]
  - INJURY [None]
  - RENAL IMPAIRMENT [None]
  - EMOTIONAL DISTRESS [None]
  - STRESS [None]
  - ANXIETY [None]
  - ANHEDONIA [None]
  - UNEVALUABLE EVENT [None]
